FAERS Safety Report 24323845 (Version 1)
Quarter: 2024Q3

REPORT INFORMATION
  Report Type: Spontaneous
  Country: PT (occurrence: PT)
  Receive Date: 20240916
  Receipt Date: 20240916
  Transmission Date: 20241016
  Serious: Yes (Other)
  Sender: PFIZER
  Company Number: None

PATIENT
  Age: 46 Year
  Sex: Male

DRUGS (1)
  1. RUXIENCE [Suspect]
     Active Substance: RITUXIMAB-PVVR
     Indication: B-cell lymphoma stage IV
     Dosage: UNK
     Route: 042
     Dates: start: 20240828, end: 20240828

REACTIONS (2)
  - Tachycardia [Recovered/Resolved]
  - Chills [Recovered/Resolved]

NARRATIVE: CASE EVENT DATE: 20240828
